FAERS Safety Report 24020787 (Version 1)
Quarter: 2024Q2

REPORT INFORMATION
  Report Type: Spontaneous
  Country: JP (occurrence: None)
  Receive Date: 20240627
  Receipt Date: 20240627
  Transmission Date: 20240716
  Serious: Yes (Death, Life-Threatening, Other)
  Sender: FDA-Public Use
  Company Number: 2023A122138

PATIENT
  Age: 66 Year
  Sex: Female
  Weight: 69 kg

DRUGS (5)
  1. IMFINZI [Suspect]
     Active Substance: DURVALUMAB
     Indication: Bile duct cancer
     Route: 041
     Dates: start: 20230426, end: 20230426
  2. GEMCITABINE [Suspect]
     Active Substance: GEMCITABINE
     Indication: Bile duct cancer
     Route: 065
     Dates: start: 20230426, end: 20230426
  3. CISPLATIN [Suspect]
     Active Substance: CISPLATIN
     Indication: Bile duct cancer
     Route: 065
     Dates: start: 20230426, end: 20230426
  4. PIPERACILLIN SODIUM\TAZOBACTAM SODIUM [Concomitant]
     Active Substance: PIPERACILLIN SODIUM\TAZOBACTAM SODIUM
     Dates: start: 20230330
  5. URSO [Concomitant]
     Active Substance: URSODIOL

REACTIONS (5)
  - Septic shock [Recovered/Resolved]
  - Anaemia [Recovered/Resolved]
  - Platelet count decreased [Recovered/Resolved]
  - Metastases to lung [Fatal]
  - Cholangitis [Unknown]

NARRATIVE: CASE EVENT DATE: 20230429
